FAERS Safety Report 11528792 (Version 1)
Quarter: 2015Q3

REPORT INFORMATION
  Report Type: Other
  Country: CN (occurrence: NG)
  Receive Date: 20150921
  Receipt Date: 20150921
  Transmission Date: 20151125
  Serious: Yes (Other)
  Sender: FDA-Public Use
  Company Number: NG-LUPIN PHARMACEUTICALS INC.-2015-02843

PATIENT
  Age: 23 Year
  Sex: Female
  Weight: 52 kg

DRUGS (5)
  1. LEVETIRACETAM. [Suspect]
     Active Substance: LEVETIRACETAM
     Indication: PRODUCT USED FOR UNKNOWN INDICATION
     Route: 065
  2. LEVETIRACETAM. [Suspect]
     Active Substance: LEVETIRACETAM
     Route: 065
  3. CARBAMAZEPINE. [Concomitant]
     Active Substance: CARBAMAZEPINE
     Indication: EPILEPSY
     Route: 065
  4. LEVETIRACETAM. [Suspect]
     Active Substance: LEVETIRACETAM
     Route: 065
  5. CLONAZEPAM. [Concomitant]
     Active Substance: CLONAZEPAM
     Indication: EPILEPSY
     Route: 065

REACTIONS (2)
  - Anger [Recovered/Resolved]
  - Suicide attempt [Recovered/Resolved]
